FAERS Safety Report 4525447-4 (Version None)
Quarter: 2004Q4

REPORT INFORMATION
  Report Type: 
  Country: None (occurrence: None)
  Receive Date: 20041108
  Receipt Date: 20031118
  Transmission Date: 20050328
  Serious: Yes (Other)
  Sender: FDA-Public Use
  Company Number: US-JNJFOC-20040608263

PATIENT
  Age: 2 Year
  Sex: Female

DRUGS (1)
  1. CHILDRENS TYLENOL LIQUID BG (ACETAMINOPHEN) SUSPENSION [Suspect]
     Indication: DRUG USE FOR UNKNOWN INDICATION
     Dosage: ,   1 IN 1 TOTAL, ORAL
     Route: 048
     Dates: start: 20031117, end: 20031117

REACTIONS (1)
  - ACCIDENTAL EXPOSURE [None]
